FAERS Safety Report 25531254 (Version 2)
Quarter: 2025Q3

REPORT INFORMATION
  Report Type: Report from Study
  Country: CA (occurrence: CA)
  Receive Date: 20250708
  Receipt Date: 20250718
  Transmission Date: 20251021
  Serious: Yes (Hospitalization, Other)
  Sender: HLS THERAPEUTICS
  Company Number: CA-HLS-202501685

PATIENT
  Age: 66 Year
  Sex: Female

DRUGS (25)
  1. CLOZARIL [Suspect]
     Active Substance: CLOZAPINE
     Indication: Product used for unknown indication
     Route: 048
     Dates: start: 20250425
  2. CLOZARIL [Suspect]
     Active Substance: CLOZAPINE
     Indication: Product used for unknown indication
     Dosage: 100 MG TAB (200 MG AT BED TIME)?CAN CONCEAL IF REFSUING
     Route: 048
     Dates: start: 20250526
  3. CLOZARIL [Suspect]
     Active Substance: CLOZAPINE
     Indication: Product used for unknown indication
     Dosage: EVERY DAY AT NOON
     Route: 048
     Dates: start: 20250620
  4. CLOZARIL [Suspect]
     Active Substance: CLOZAPINE
     Indication: Product used for unknown indication
     Dosage: 25 MG TABLET ? (EVERY MORNING)
     Route: 048
     Dates: start: 20250521
  5. CLOZARIL [Suspect]
     Active Substance: CLOZAPINE
     Indication: Product used for unknown indication
     Dosage: AT BED TIME (STRENGTH 25 MG TABLET)
     Route: 048
     Dates: start: 20250611
  6. LIPITOR [Concomitant]
     Active Substance: ATORVASTATIN CALCIUM
     Indication: Product used for unknown indication
     Route: 048
     Dates: start: 20250430
  7. ABILIFY [Concomitant]
     Active Substance: ARIPIPRAZOLE
     Indication: Product used for unknown indication
     Dosage: 2 MG ORAL EVERY MORNNING
     Route: 065
     Dates: start: 20250708
  8. PERINDOPRIL [Concomitant]
     Active Substance: PERINDOPRIL
     Indication: Product used for unknown indication
     Dosage: EVERY MORNING
     Route: 048
     Dates: start: 20250501, end: 20250707
  9. LINAGLIPTIN [Concomitant]
     Active Substance: LINAGLIPTIN
     Indication: Product used for unknown indication
     Dosage: EVERY MORNING
     Route: 048
     Dates: start: 20250501
  10. OLODATEROL HYDROCHLORIDE\TIOTROPIUM BROMIDE MONOHYDRATE [Concomitant]
     Active Substance: OLODATEROL HYDROCHLORIDE\TIOTROPIUM BROMIDE MONOHYDRATE
     Indication: Product used for unknown indication
     Route: 055
     Dates: start: 20250501
  11. JARDIANCE [Concomitant]
     Active Substance: EMPAGLIFLOZIN
     Indication: Product used for unknown indication
     Dosage: EVERY MORNING
     Route: 048
     Dates: start: 20250501
  12. BETNOVATE [Concomitant]
     Active Substance: BETAMETHASONE
     Indication: Product used for unknown indication
     Dosage: 0.1%?1 APPLICATION EACH MORNING  AND BED TIME
     Route: 061
     Dates: start: 20250430
  13. TYLENOL [Concomitant]
     Active Substance: ACETAMINOPHEN
     Indication: Pain
     Route: 048
     Dates: start: 20250430
  14. GLUCOPHAGE [Concomitant]
     Active Substance: METFORMIN HYDROCHLORIDE
     Indication: Product used for unknown indication
     Dosage: 500 MG TAB BEST TAKEN WITH FOOD
     Route: 048
     Dates: start: 20250430
  15. NORVASC [Concomitant]
     Active Substance: AMLODIPINE BESYLATE
     Indication: Product used for unknown indication
     Dosage: EVERY MORNING
     Route: 048
     Dates: start: 20250501, end: 20250707
  16. VITAMIN B12 [Concomitant]
     Active Substance: CYANOCOBALAMIN
     Indication: Product used for unknown indication
     Dosage: AT BED TIME
     Route: 048
     Dates: start: 20250505
  17. INDERAL [Concomitant]
     Active Substance: PROPRANOLOL HYDROCHLORIDE
     Indication: Product used for unknown indication
     Dosage: EVERY DAY AT 0800, 1400, 2100
     Route: 048
     Dates: start: 20250430
  18. Dulcolax [Concomitant]
     Indication: Constipation
     Route: 054
     Dates: start: 20250430
  19. COGENTIN [Concomitant]
     Active Substance: BENZTROPINE MESYLATE
     Indication: Tremor
     Dosage: AT BED TIME WHEN NEEDED
     Route: 048
     Dates: start: 20250512
  20. SENOKOT [Concomitant]
     Active Substance: SENNOSIDES
     Indication: Constipation
     Dosage: AT NOON AND BED TIME WHEN NEEDED?8.6 MG TAB
     Route: 065
     Dates: start: 20250430
  21. VENTOLIN [Concomitant]
     Active Substance: ALBUTEROL SULFATE
     Indication: Dyspnoea
     Route: 055
     Dates: start: 20250430
  22. VENTOLIN [Concomitant]
     Active Substance: ALBUTEROL SULFATE
     Indication: Wheezing
     Route: 055
     Dates: start: 20250430
  23. SEROQUEL [Concomitant]
     Active Substance: QUETIAPINE FUMARATE
     Indication: Agitation
     Route: 048
     Dates: start: 20250430
  24. NICORETTE [Concomitant]
     Active Substance: NICOTINE
     Indication: Nicotine dependence
     Route: 055
     Dates: start: 20250612
  25. Acilac [Concomitant]
     Indication: Constipation
     Route: 048
     Dates: start: 20250430

REACTIONS (6)
  - Neutrophilia [Not Recovered/Not Resolved]
  - Bacteraemia [Unknown]
  - Chronic obstructive pulmonary disease [Unknown]
  - Pneumonia [Unknown]
  - Schizophrenia [Unknown]
  - Leukocytosis [Not Recovered/Not Resolved]

NARRATIVE: CASE EVENT DATE: 20250623
